FAERS Safety Report 6407361-2 (Version None)
Quarter: 2009Q4

REPORT INFORMATION
  Report Type: 
  Country: None (occurrence: None)
  Receive Date: 20091020
  Receipt Date: 20091008
  Transmission Date: 20100525
  Serious: Yes (Hospitalization, Other)
  Sender: FDA-Public Use
  Company Number: US-CELGENEUS-163-21880-09050236

PATIENT
  Sex: Male

DRUGS (4)
  1. REVLIMID [Suspect]
     Indication: MYELODYSPLASTIC SYNDROME
     Route: 048
     Dates: start: 20080110
  2. REVLIMID [Suspect]
     Route: 048
  3. BENADRYL [Concomitant]
     Indication: DRUG USE FOR UNKNOWN INDICATION
     Route: 065
  4. TESTOSTERONE THERAY [Concomitant]
     Indication: DRUG USE FOR UNKNOWN INDICATION
     Route: 065

REACTIONS (8)
  - CATARACT [None]
  - HAEMORRHAGIC DIATHESIS [None]
  - INFLUENZA LIKE ILLNESS [None]
  - NEUROPATHY PERIPHERAL [None]
  - PLATELET COUNT DECREASED [None]
  - PNEUMONIA ASPIRATION [None]
  - PROSTATIC SPECIFIC ANTIGEN INCREASED [None]
  - WHITE BLOOD CELL COUNT DECREASED [None]
